FAERS Safety Report 20441081 (Version 2)
Quarter: 2023Q1

REPORT INFORMATION
  Report Type: Spontaneous
  Country: AU (occurrence: AU)
  Receive Date: 20220208
  Receipt Date: 20230208
  Transmission Date: 20230418
  Serious: Yes (Life-Threatening, Hospitalization, Other)
  Sender: FDA-Public Use
  Company Number: AU-SUN PHARMACEUTICAL INDUSTRIES LTD-2022RR-326113

PATIENT
  Age: 51 Year
  Sex: Female

DRUGS (8)
  1. METOCLOPRAMIDE [Suspect]
     Active Substance: METOCLOPRAMIDE
     Indication: Vomiting
     Dosage: 10 MILLIGRAM, UNK
     Route: 042
  2. FLUOXETINE [Suspect]
     Active Substance: FLUOXETINE HYDROCHLORIDE
     Indication: Depression
     Dosage: 20 MILLIGRAM, DAILY
     Route: 048
  3. ONDANSETRON [Suspect]
     Active Substance: ONDANSETRON
     Indication: Vomiting
     Dosage: 8 MILLIGRAM, UNK
     Route: 042
  4. POTASSIUM [Concomitant]
     Active Substance: POTASSIUM
     Indication: Electrolyte substitution therapy
     Dosage: 10 MMOL, UNK
     Route: 042
  5. POTASSIUM [Concomitant]
     Active Substance: POTASSIUM
     Dosage: 10 MMOL, UNK
     Route: 042
  6. POTASSIUM [Concomitant]
     Active Substance: POTASSIUM
     Dosage: 10 MMOL, UNK
     Route: 042
  7. MAGNESIUM [Concomitant]
     Active Substance: MAGNESIUM
     Indication: Electrolyte substitution therapy
     Dosage: 10 MMOL, UNK
     Route: 042
  8. MAGNESIUM [Concomitant]
     Active Substance: MAGNESIUM
     Dosage: 10 MMOL, UNK
     Route: 042

REACTIONS (4)
  - Cardiac arrest [Recovering/Resolving]
  - Long QT syndrome [Recovered/Resolved]
  - Hypokalaemia [Unknown]
  - Hypomagnesaemia [Unknown]
